FAERS Safety Report 4681514-6 (Version None)
Quarter: 2005Q2

REPORT INFORMATION
  Report Type: 
  Country: None (occurrence: None)
  Receive Date: 20050603
  Receipt Date: 20050525
  Transmission Date: 20051028
  Serious: Yes (Other)
  Sender: FDA-Public Use
  Company Number: GB-SANOFI-SYNTHELABO-A01200503597

PATIENT
  Age: 60 Year
  Sex: Female

DRUGS (2)
  1. HYDROXYCHLOROQUINE SULFATE [Suspect]
     Indication: LICHEN PLANUS
     Route: 048
     Dates: start: 20050101, end: 20050101
  2. PREDNISOLONE [Concomitant]
     Indication: LICHEN PLANUS
     Dosage: 25 MG
     Route: 048
     Dates: start: 20050101

REACTIONS (3)
  - EYE PAIN [None]
  - LACRIMATION INCREASED [None]
  - TRIGEMINAL NEURALGIA [None]
